FAERS Safety Report 9784700 (Version 2)
Quarter: 2013Q4

REPORT INFORMATION
  Report Type: Report from Study
  Country: CO (occurrence: CO)
  Receive Date: 20131226
  Receipt Date: 20131226
  Transmission Date: 20140711
  Serious: Yes (Hospitalization, Other)
  Sender: FDA-Public Use
  Company Number: CO-AMGEN-COLCT2011051701

PATIENT
  Age: 33 Year
  Sex: Male
  Weight: 61.2 kg

DRUGS (6)
  1. ETANERCEPT [Suspect]
     Indication: PRODUCT USED FOR UNKNOWN INDICATION
     Dosage: 50 MG, QWK
     Route: 058
     Dates: start: 20110806, end: 20110910
  2. IBUPROFEN [Concomitant]
     Indication: SPONDYLITIS
     Dosage: 1600 MG, 1X/DAY
     Route: 048
     Dates: start: 20110617
  3. SULFASALAZINE [Concomitant]
     Indication: SPONDYLITIS
     Dosage: 50 MG, 1X/DAY
     Route: 048
     Dates: start: 20110113
  4. DICLOFENAC [Concomitant]
     Indication: PAIN
     Dosage: 75 MG, 1X/DAY
     Route: 048
     Dates: start: 20110916, end: 20110921
  5. ACETAMINOPHEN [Concomitant]
     Indication: ANAL ABSCESS
     Dosage: 500 MG, 1X/DAY
     Route: 048
     Dates: start: 20110916, end: 20110921
  6. DICLOXACILLIN [Concomitant]
     Indication: ANAL ABSCESS
     Dosage: 500 MG, 1X/DAY
     Route: 048
     Dates: start: 20110916, end: 20110921

REACTIONS (2)
  - Anal abscess [Recovered/Resolved]
  - Uveitis [Recovered/Resolved]
